FAERS Safety Report 21728243 (Version 1)
Quarter: 2022Q4

REPORT INFORMATION
  Report Type: Spontaneous
  Country: US (occurrence: US)
  Receive Date: 20221214
  Receipt Date: 20221214
  Transmission Date: 20230112
  Serious: No
  Sender: FDA-Public Use
  Company Number: US-PAIPHARMA-2022-US-003875

PATIENT
  Age: 5 Year
  Sex: Male
  Weight: 17.24 kg

DRUGS (1)
  1. ETHOSUXIMIDE [Suspect]
     Active Substance: ETHOSUXIMIDE
     Indication: Seizure prophylaxis
     Dosage: DAILY, AS PRESCRIBED
     Route: 048
     Dates: start: 20220122

REACTIONS (2)
  - Pruritus [Not Recovered/Not Resolved]
  - Rash macular [Not Recovered/Not Resolved]

NARRATIVE: CASE EVENT DATE: 20220122
